FAERS Safety Report 7896397-0 (Version None)
Quarter: 2011Q4

REPORT INFORMATION
  Report Type: 
  Country: None (occurrence: None)
  Receive Date: 20111102
  Receipt Date: 20111102
  Transmission Date: 20120403
  Serious: Yes (Disabling)
  Sender: FDA-Public Use
  Company Number: 1022556-2011-00028

PATIENT
  Age: 26 Year
  Sex: Female

DRUGS (1)
  1. ASPERCREME MAX NO MESS ROLL ON 2.5 OZ [Suspect]
     Indication: MYALGIA
     Dosage: TOPICAL
     Route: 061

REACTIONS (2)
  - APPLICATION SITE BURN [None]
  - APPLICATION SITE VESICLES [None]
